FAERS Safety Report 7714424 (Version 5)
Quarter: 2020Q4

REPORT INFORMATION
  Report Type: Spontaneous
  Country: FR (occurrence: FR)
  Receive Date: 20040826
  Receipt Date: 20201022
  Transmission Date: 20210114
  Serious: Yes (Hospitalization)
  Sender: FDA-Public Use
  Company Number: FR-JNJFOC-20040703149

PATIENT
  Age: 10 Year
  Sex: Female

DRUGS (4)
  1. IBUPROFEN. [Suspect]
     Active Substance: IBUPROFEN
     Indication: PYREXIA
     Dosage: ^USUAL DOSES^
     Route: 048
  2. OXATOMIDE [Concomitant]
     Active Substance: OXATOMIDE
  3. BETAMETHASONE. [Concomitant]
     Active Substance: BETAMETHASONE
  4. IBUPROFEN. [Suspect]
     Active Substance: IBUPROFEN
     Indication: PHARYNGITIS

REACTIONS (2)
  - Vanishing bile duct syndrome [Recovered/Resolved]
  - Stevens-Johnson syndrome [Recovered/Resolved]
